FAERS Safety Report 9850822 (Version 1)
Quarter: 2014Q1

REPORT INFORMATION
  Report Type: Spontaneous
  Country: ZA (occurrence: ZA)
  Receive Date: 20140128
  Receipt Date: 20140128
  Transmission Date: 20141002
  Serious: Yes (Hospitalization)
  Sender: FDA-Public Use
  Company Number: ZA-ABBVIE-14P-143-1192825-00

PATIENT
  Age: 67 Year
  Sex: Female

DRUGS (6)
  1. HUMIRA [Suspect]
     Indication: RHEUMATOID ARTHRITIS
     Route: 058
     Dates: start: 20131018, end: 20131227
  2. METHOTREXATE [Concomitant]
     Indication: RHEUMATOID ARTHRITIS
     Dosage: WEEKLY
     Dates: start: 201211, end: 201312
  3. MYPRODOL [Concomitant]
     Dosage: INTERMITTENT USE
  4. FOLATE [Concomitant]
  5. LEXAMIL [Concomitant]
  6. ACTIVELLE [Concomitant]

REACTIONS (4)
  - Lower respiratory tract inflammation [Recovering/Resolving]
  - Pulmonary toxicity [Unknown]
  - Dyspnoea [Unknown]
  - Cough [Recovering/Resolving]
